FAERS Safety Report 9096323 (Version 1)
Quarter: 2013Q1

REPORT INFORMATION
  Report Type: Spontaneous
  Country: US (occurrence: US)
  Receive Date: 20130207
  Receipt Date: 20130207
  Transmission Date: 20140127
  Serious: No
  Sender: FDA-Public Use
  Company Number: US-BAUSCH-BL-2012-001631

PATIENT
  Age: 72 Year
  Sex: Female

DRUGS (2)
  1. LOTEPREDNOL ETABONATE [Suspect]
     Indication: DRY EYE
     Dosage: 1 RIBBON IN RIGHT EYE, AT BEDTIME
     Route: 047
     Dates: start: 20121026, end: 20121030
  2. LOTEPREDNOL ETABONATE [Suspect]
     Indication: ULCER

REACTIONS (2)
  - Eye pruritus [Not Recovered/Not Resolved]
  - Sensation of pressure [Not Recovered/Not Resolved]
